FAERS Safety Report 25056417 (Version 1)
Quarter: 2025Q1

REPORT INFORMATION
  Report Type: Spontaneous
  Country: JP (occurrence: JP)
  Receive Date: 20250310
  Receipt Date: 20250310
  Transmission Date: 20250409
  Serious: Yes (Other)
  Sender: AMGEN
  Company Number: JP-DSJP-DS-2025-128346-

PATIENT
  Age: 50 Year
  Sex: Female

DRUGS (1)
  1. DENOSUMAB [Suspect]
     Active Substance: DENOSUMAB
     Indication: Metastases to bone
     Route: 058

REACTIONS (4)
  - Metastases to liver [Unknown]
  - Metastases to bone [Unknown]
  - Breast mass [Unknown]
  - Erythema [Unknown]
